FAERS Safety Report 5064409-8 (Version None)
Quarter: 2006Q3

REPORT INFORMATION
  Report Type: 
  Country: None (occurrence: None)
  Receive Date: 20060725
  Receipt Date: 20060717
  Transmission Date: 20061208
  Serious: Yes (Hospitalization)
  Sender: FDA-Public Use
  Company Number: 2006BI010134

PATIENT
  Age: 38 Year
  Sex: Female

DRUGS (1)
  1. AVONEX [Suspect]
     Indication: MULTIPLE SCLEROSIS
     Dosage: 30 UG; QW; IM
     Route: 030
     Dates: start: 20040905

REACTIONS (4)
  - CENTRAL NERVOUS SYSTEM INFECTION [None]
  - MENINGITIS [None]
  - MUSCLE SPASTICITY [None]
  - THERAPY NON-RESPONDER [None]
